FAERS Safety Report 5523851-9 (Version None)
Quarter: 2007Q4

REPORT INFORMATION
  Report Type: 
  Country: None (occurrence: None)
  Receive Date: 20071121
  Receipt Date: 20071116
  Transmission Date: 20080405
  Serious: Yes (Other)
  Sender: FDA-Public Use
  Company Number: US-SHR-01/06193-USE

PATIENT
  Age: 57 Year
  Sex: Female
  Weight: 56 kg

DRUGS (6)
  1. BETASERON [Suspect]
     Indication: MULTIPLE SCLEROSIS
     Dosage: 8 MIU, EVERY 2D
     Route: 058
     Dates: start: 19950101
  2. BACLOFEN [Concomitant]
     Indication: MULTIPLE SCLEROSIS
     Dates: start: 20010101
  3. PROZAC [Concomitant]
     Dates: start: 19980101
  4. TRAZODONE HCL [Concomitant]
     Indication: INSOMNIA
     Dates: start: 19980101
  5. TAMOXIFEN CITRATE [Concomitant]
     Dates: start: 20010101
  6. PAIN MEDICATION (UNSPECIFIED) [Concomitant]

REACTIONS (6)
  - DRY SKIN [None]
  - INJECTION SITE ATROPHY [None]
  - INJECTION SITE BRUISING [None]
  - INJECTION SITE NECROSIS [None]
  - INJECTION SITE PAIN [None]
  - MULTIPLE SCLEROSIS [None]
